FAERS Safety Report 7266276-0 (Version None)
Quarter: 2011Q1

REPORT INFORMATION
  Report Type: 
  Country: None (occurrence: None)
  Receive Date: 20110119
  Receipt Date: 20110106
  Transmission Date: 20110831
  Serious: No
  Sender: FDA-Public Use
  Company Number: 2010SP028727

PATIENT
  Age: 22 Year
  Sex: Female
  Weight: 97.5234 kg

DRUGS (3)
  1. NUVARING [Suspect]
     Indication: CONTRACEPTION
     Dosage: VAG
     Route: 067
     Dates: start: 20071029
  2. XANAX [Concomitant]
  3. MULTI-VITAMIN [Concomitant]

REACTIONS (19)
  - INSOMNIA [None]
  - GENERALISED ANXIETY DISORDER [None]
  - NAUSEA [None]
  - TRANSIENT ISCHAEMIC ATTACK [None]
  - THROMBOSIS [None]
  - MIGRAINE [None]
  - SINUS TACHYCARDIA [None]
  - HEAD INJURY [None]
  - VISION BLURRED [None]
  - AMENORRHOEA [None]
  - PULMONARY EMBOLISM [None]
  - HYPERTENSION [None]
  - ASTHENIA [None]
  - PARAESTHESIA [None]
  - HIRSUTISM [None]
  - POLYCYSTIC OVARIES [None]
  - PAIN IN EXTREMITY [None]
  - DYSARTHRIA [None]
  - APPENDICECTOMY [None]
